FAERS Safety Report 24909932 (Version 1)
Quarter: 2025Q1

REPORT INFORMATION
  Report Type: Spontaneous
  Country: IR (occurrence: IR)
  Receive Date: 20250131
  Receipt Date: 20250131
  Transmission Date: 20250409
  Serious: Yes (Death, Hospitalization, Other)
  Sender: QUAGEN PHARMACEUTICALS
  Company Number: IR-QUAGEN-2025QUALIT00128

PATIENT
  Age: 5 Year
  Sex: Male
  Weight: 38 kg

DRUGS (7)
  1. CLOBETASOL PROPIONATE [Suspect]
     Active Substance: CLOBETASOL PROPIONATE
     Indication: Psoriasis
     Route: 061
  2. METHOTREXATE [Concomitant]
     Active Substance: METHOTREXATE
     Indication: Psoriasis
     Route: 048
  3. METHOTREXATE [Concomitant]
     Active Substance: METHOTREXATE
     Route: 030
  4. HYDROCORTISONE [Concomitant]
     Active Substance: HYDROCORTISONE
     Dosage: 10  MG IN THE MORNING, 5  MG AT  NIGHT
     Route: 048
  5. HYDROCORTISONE [Concomitant]
     Active Substance: HYDROCORTISONE
     Route: 042
  6. ENALAPRIL [Concomitant]
     Active Substance: ENALAPRIL
     Dosage: 2.5 MG IN THE MORNING, 1.25 MG AT NIGHT
     Route: 065
  7. ENALAPRIL [Concomitant]
     Active Substance: ENALAPRIL
     Route: 065

REACTIONS (6)
  - Cushing^s syndrome [Fatal]
  - Pyrexia [Fatal]
  - Vomiting [Fatal]
  - Intentional product misuse to child [Unknown]
  - Product use issue [Unknown]
  - Product use in unapproved indication [Unknown]
